FAERS Safety Report 19984712 (Version 6)
Quarter: 2022Q1

REPORT INFORMATION
  Report Type: Spontaneous
  Country: US (occurrence: US)
  Receive Date: 20211022
  Receipt Date: 20220208
  Transmission Date: 20220423
  Serious: No
  Sender: FDA-Public Use
  Company Number: US-LUPIN PHARMACEUTICALS INC.-2021-19816

PATIENT
  Age: 6 Month
  Weight: 7.25 kg

DRUGS (1)
  1. FAMOTIDINE [Suspect]
     Active Substance: FAMOTIDINE
     Indication: Gastrooesophageal reflux disease
     Dosage: 0.2 MILLILITER, BID (1.6 MG TWICE A DAY)
     Route: 048
     Dates: start: 2021, end: 20211007

REACTIONS (4)
  - Product preparation issue [Unknown]
  - Poor quality product administered [Unknown]
  - Product reconstitution quality issue [Unknown]
  - No adverse event [Unknown]

NARRATIVE: CASE EVENT DATE: 20211001
